FAERS Safety Report 12717382 (Version 2)
Quarter: 2016Q3

REPORT INFORMATION
  Report Type: Spontaneous
  Country: JP (occurrence: JP)
  Receive Date: 20160906
  Receipt Date: 20160920
  Transmission Date: 20161109
  Serious: Yes (Hospitalization, Other)
  Sender: FDA-Public Use
  Company Number: JP-GLAXOSMITHKLINE-JP2016JPN116640

PATIENT
  Age: 86 Year
  Sex: Female
  Weight: 45 kg

DRUGS (14)
  1. OMEPRAZOLE. [Concomitant]
     Active Substance: OMEPRAZOLE
  2. CILNIDIPINE [Concomitant]
     Active Substance: CILNIDIPINE
  3. RIKKUNSHITOU [Concomitant]
  4. TRIAZOLAM. [Concomitant]
     Active Substance: TRIAZOLAM
  5. TICLOPIDINE HYDROCHLORIDE. [Concomitant]
     Active Substance: TICLOPIDINE HYDROCHLORIDE
  6. MICAMLO [Concomitant]
     Active Substance: AMLODIPINE BESYLATE\TELMISARTAN
  7. PREDNISOLONE. [Concomitant]
     Active Substance: PREDNISOLONE
     Dosage: 20 MG, 1D
     Dates: start: 20160809
  8. HUMULIN R [Concomitant]
     Active Substance: INSULIN HUMAN
  9. TRESIBA [Concomitant]
     Active Substance: INSULIN DEGLUDEC
  10. PREDNISOLONE. [Concomitant]
     Active Substance: PREDNISOLONE
     Dosage: 17.5 MG, 1D
     Dates: start: 20160830
  11. LAMICTAL [Suspect]
     Active Substance: LAMOTRIGINE
     Indication: EPILEPSY
     Dosage: 25 MG, QD
     Route: 048
     Dates: start: 20160630, end: 20160713
  12. E KEPPRA [Concomitant]
     Active Substance: LEVETIRACETAM
     Indication: EPILEPSY
     Dosage: 500 MG, BID
     Dates: start: 20160514, end: 201606
  13. PREDNISOLONE. [Concomitant]
     Active Substance: PREDNISOLONE
  14. LAMICTAL [Suspect]
     Active Substance: LAMOTRIGINE
     Dosage: 50 MG, QD
     Route: 048
     Dates: start: 20160714, end: 20160727

REACTIONS (2)
  - Polymyalgia rheumatica [Recovering/Resolving]
  - Neutrophil count decreased [Recovering/Resolving]

NARRATIVE: CASE EVENT DATE: 20160728
